FAERS Safety Report 6353489-5 (Version None)
Quarter: 2009Q3

REPORT INFORMATION
  Report Type: 
  Country: None (occurrence: None)
  Receive Date: 20090912
  Receipt Date: 20090622
  Transmission Date: 20100115
  Serious: No
  Sender: FDA-Public Use
  Company Number: US-ABBOTT-08P-163-0470676-00

PATIENT
  Sex: Female
  Weight: 65.83 kg

DRUGS (4)
  1. HUMIRA [Suspect]
     Indication: CROHN'S DISEASE
     Dosage: LOADING DOSE
     Route: 058
     Dates: start: 20080813
  2. CYPROHEPTADINE HYDROCHLORIDE [Concomitant]
     Indication: DRUG USE FOR UNKNOWN INDICATION
     Route: 048
  3. LIALDA [Concomitant]
     Indication: DRUG USE FOR UNKNOWN INDICATION
     Route: 048
  4. KAPSOVIT [Concomitant]
     Indication: VITAMIN SUPPLEMENTATION
     Dosage: 1 DAILY
     Route: 048

REACTIONS (2)
  - DRUG DELIVERY SYSTEM MALFUNCTION [None]
  - INJECTION SITE EXTRAVASATION [None]
